FAERS Safety Report 7596856-4 (Version None)
Quarter: 2011Q3

REPORT INFORMATION
  Report Type: 
  Country: None (occurrence: None)
  Receive Date: 20110708
  Receipt Date: 20110627
  Transmission Date: 20111222
  Serious: Yes (Hospitalization)
  Sender: FDA-Public Use
  Company Number: US-JNJFOC-20110612953

PATIENT
  Age: 81 Year
  Sex: Male

DRUGS (1)
  1. REMICADE [Suspect]
     Indication: PYODERMA GANGRENOSUM
     Dosage: 3 INFUSIONS
     Route: 042
     Dates: start: 20110401

REACTIONS (3)
  - THROMBOSIS [None]
  - DYSPNOEA [None]
  - FATIGUE [None]
